FAERS Safety Report 7298168-5 (Version None)
Quarter: 2011Q1

REPORT INFORMATION
  Report Type: 
  Country: None (occurrence: None)
  Receive Date: 20110214
  Receipt Date: 20110214
  Transmission Date: 20110831
  Serious: No
  Sender: FDA-Public Use
  Company Number: None

PATIENT
  Age: 50 Year
  Sex: Male
  Weight: 109.7705 kg

DRUGS (2)
  1. OXYCONTIN [Suspect]
     Indication: KNEE ARTHROPLASTY
     Dosage: 80 MG TWICE DAILY PO
     Route: 048
     Dates: start: 20110211
  2. OXYCONTIN [Suspect]
     Indication: SPINAL CORD DISORDER
     Dosage: 80 MG TWICE DAILY PO
     Route: 048
     Dates: start: 20110211

REACTIONS (2)
  - MUSCLE SPASMS [None]
  - ABDOMINAL DISCOMFORT [None]
